FAERS Safety Report 14189415 (Version 1)
Quarter: 2017Q4

REPORT INFORMATION
  Report Type: Report from Study
  Country: US (occurrence: US)
  Receive Date: 20171115
  Receipt Date: 20171115
  Transmission Date: 20180321
  Serious: Yes (Other)
  Sender: FDA-Public Use
  Company Number: US-CIPLA LTD.-2017US20409

PATIENT

DRUGS (2)
  1. IRINOTECAN [Suspect]
     Active Substance: IRINOTECAN
     Indication: NEOPLASM
     Dosage: 180 MG/M2, BIWEEKLY ON DAYS 1 AND 15 OF EACH TREATMENT CYCLE
     Route: 042
  2. PF-04691502 [Suspect]
     Active Substance: INVESTIGATIONAL PRODUCT
     Indication: NEOPLASM
     Dosage: UNK, DAILY ON DAYS 2-12 AND DAYS 16-26 OF EACH CYCLE
     Route: 048

REACTIONS (3)
  - Cholestasis [Unknown]
  - Febrile neutropenia [Unknown]
  - Transaminases increased [Unknown]
